FAERS Safety Report 5328353-0 (Version None)
Quarter: 2007Q2

REPORT INFORMATION
  Report Type: 
  Country: None (occurrence: None)
  Receive Date: 20070515
  Receipt Date: 20070515
  Transmission Date: 20071010
  Serious: No
  Sender: FDA-Public Use
  Company Number: None

PATIENT
  Age: 51 Year
  Sex: Female

DRUGS (1)
  1. TARCEVA [Suspect]
     Dosage: 150MG DAILY PO
     Route: 048
     Dates: start: 20070410, end: 20070510

REACTIONS (1)
  - RASH [None]
